FAERS Safety Report 9052086 (Version 1)
Quarter: 2013Q1

REPORT INFORMATION
  Report Type: Spontaneous
  Country: US (occurrence: None)
  Receive Date: 20130131
  Receipt Date: 20130131
  Transmission Date: 20140127
  Serious: Yes (Hospitalization)
  Sender: FDA-Public Use
  Company Number: None

PATIENT
  Age: 40 Year
  Sex: Male
  Weight: 135 kg

DRUGS (7)
  1. GLIPIZIDE ER [Suspect]
     Indication: TYPE 2 DIABETES MELLITUS
     Route: 048
  2. SYNTHROID [Concomitant]
  3. OMEPRAZOLE [Concomitant]
  4. FOLIC ACID [Concomitant]
  5. TRAMADOL [Concomitant]
  6. LISINOPRIL [Concomitant]
  7. DILTIAZEM [Concomitant]

REACTIONS (3)
  - Hypoglycaemia [None]
  - Feeling abnormal [None]
  - Weight decreased [None]
